FAERS Safety Report 6429364-4 (Version None)
Quarter: 2009Q4

REPORT INFORMATION
  Report Type: 
  Country: None (occurrence: None)
  Receive Date: 20091105
  Receipt Date: 20090422
  Transmission Date: 20100525
  Serious: No
  Sender: FDA-Public Use
  Company Number: US-ABBOTT-09P-163-0569481-00

PATIENT
  Sex: Male
  Weight: 83.99 kg

DRUGS (2)
  1. KALETRA [Suspect]
     Indication: HIV INFECTION
     Route: 048
     Dates: start: 20080617
  2. REMERON [Concomitant]
     Indication: DEPRESSION
     Route: 048

REACTIONS (1)
  - DIARRHOEA [None]
